FAERS Safety Report 4800303-2 (Version None)
Quarter: 2005Q4

REPORT INFORMATION
  Report Type: 
  Country: None (occurrence: None)
  Receive Date: 20051013
  Receipt Date: 20050927
  Transmission Date: 20060501
  Serious: Yes (Life-Threatening)
  Sender: FDA-Public Use
  Company Number: 216139

PATIENT
  Age: 67 Year
  Sex: Male

DRUGS (10)
  1. HERCEPTIN [Suspect]
     Indication: BREAST CANCER
     Dosage: 200 MG, INTRAVENOUS
     Route: 042
     Dates: start: 20050621, end: 20050621
  2. ADRIAMYCIN PFS [Suspect]
     Indication: BREAST CANCER METASTATIC
     Dosage: 40 MG, 2/WEE, INTRATHORACID
     Route: 038
     Dates: start: 20050614, end: 20050616
  3. PICIBANIL (STREPTOCOCCUS PYOGENES) [Concomitant]
  4. ARIMIDEX [Concomitant]
  5. CYCLOPHOSPHAMIDE [Concomitant]
  6. METHOTREXATE [Concomitant]
  7. FLUOROURACIL [Concomitant]
  8. TAMOXIFEN CITRATE [Concomitant]
  9. NOVALDEX (TAMOXIFEN CITRATE) [Concomitant]
  10. FURTULON (DOXFLURIDINE) [Concomitant]

REACTIONS (8)
  - ERYTHEMA [None]
  - HAEMOGLOBIN DECREASED [None]
  - HYPOPROTEINAEMIA [None]
  - LIVER DISORDER [None]
  - NEUTROPHIL COUNT DECREASED [None]
  - PLATELET COUNT DECREASED [None]
  - PYREXIA [None]
  - WHITE BLOOD CELL COUNT DECREASED [None]
